FAERS Safety Report 20367717 (Version 1)
Quarter: 2022Q1

REPORT INFORMATION
  Report Type: Spontaneous
  Country: US (occurrence: US)
  Receive Date: 20220124
  Receipt Date: 20220124
  Transmission Date: 20220423
  Serious: No
  Sender: FDA-Public Use
  Company Number: US-AMGEN-USASP2022005036

PATIENT

DRUGS (1)
  1. REPATHA [Suspect]
     Active Substance: EVOLOCUMAB
     Indication: Product used for unknown indication
     Dosage: UNK
     Route: 065

REACTIONS (7)
  - Asthenia [Unknown]
  - Joint swelling [Unknown]
  - Gait disturbance [Unknown]
  - Blood urea increased [Unknown]
  - Blood glucose increased [Unknown]
  - Muscle spasms [Unknown]
  - Myalgia [Unknown]
